FAERS Safety Report 24601210 (Version 1)
Quarter: 2024Q4

REPORT INFORMATION
  Report Type: Spontaneous
  Country: CN (occurrence: CN)
  Receive Date: 20241111
  Receipt Date: 20241111
  Transmission Date: 20250114
  Serious: Yes (Hospitalization)
  Sender: STRIDES
  Company Number: CN-STRIDES ARCOLAB LIMITED-2024SP014385

PATIENT
  Age: 58 Year
  Sex: Male

DRUGS (10)
  1. MORPHINE SULFATE [Interacting]
     Active Substance: MORPHINE SULFATE
     Indication: Neck pain
     Dosage: 30 MILLIGRAM, EVERY 12 HRS (SUSTAINED-RELEASE TABLETS), TABLET
     Route: 065
  2. MORPHINE SULFATE [Interacting]
     Active Substance: MORPHINE SULFATE
     Dosage: UNK (RESTARTED)
     Route: 065
  3. TRAMADOL [Suspect]
     Active Substance: TRAMADOL
     Indication: Neck pain
     Dosage: UNK
     Route: 065
  4. PACLITAXEL [Interacting]
     Active Substance: PACLITAXEL
     Indication: Pancreatic carcinoma stage IV
     Dosage: 200 MILLIGRAM, CYCLICAL , ON DAYS 1 AND 8
     Route: 065
  5. PACLITAXEL [Interacting]
     Active Substance: PACLITAXEL
     Dosage: UNK, CYCLICAL
     Route: 065
  6. GIMERACIL\OTERACIL\TEGAFUR [Interacting]
     Active Substance: GIMERACIL\OTERACIL POTASSIUM\TEGAFUR
     Indication: Pancreatic carcinoma stage IV
     Dosage: 60 MILLIGRAM, CYCLICAL (60MG IN THE MORNING AND 40MG IN THE EVENING FROM DAYS 1 TO 14, REPEATED EVER
     Route: 065
  7. GIMERACIL\OTERACIL\TEGAFUR [Interacting]
     Active Substance: GIMERACIL\OTERACIL POTASSIUM\TEGAFUR
     Dosage: 40 MILLIGRAM, CYCLICAL (60MG IN THE MORNING AND 40MG IN THE EVENING FROM DAYS 1 TO 14, REPEATED EVER
     Route: 065
  8. GIMERACIL\OTERACIL\TEGAFUR [Interacting]
     Active Substance: GIMERACIL\OTERACIL POTASSIUM\TEGAFUR
     Dosage: UNK, CYCLICAL
     Route: 065
  9. IBANDRONATE SODIUM [Interacting]
     Active Substance: IBANDRONATE SODIUM
     Indication: Metastases to bone
     Dosage: 4 MILLIGRAM
     Route: 065
  10. ETHAMBUTOL HYDROCHLORIDE\ISONIAZID\PYRAZINAMIDE\RIFAMPIN [Interacting]
     Active Substance: ETHAMBUTOL HYDROCHLORIDE\ISONIAZID\PYRAZINAMIDE\RIFAMPIN
     Indication: Pulmonary tuberculosis
     Dosage: UNK, TID (ADMINISTERED AT ONE TABLET THREE TIMES DAILY)
     Route: 065

REACTIONS (3)
  - Drug interaction [Recovered/Resolved]
  - Intestinal obstruction [Recovered/Resolved]
  - Drug ineffective [Unknown]
